FAERS Safety Report 4963298-7 (Version None)
Quarter: 2006Q2

REPORT INFORMATION
  Report Type: 
  Country: None (occurrence: None)
  Receive Date: 20060404
  Receipt Date: 20060404
  Transmission Date: 20061013
  Serious: Yes (Disabling)
  Sender: FDA-Public Use
  Company Number: None

PATIENT
  Age: 81 Year
  Sex: Male
  Weight: 83 kg

DRUGS (1)
  1. PIPERACILLIN AND TAZOBACTAM [Suspect]
     Indication: BACTERAEMIA
     Dosage: 3.375 GM  EVERY 6 HOURS   IV BOLUS
     Route: 040
     Dates: start: 20060205, end: 20060207

REACTIONS (1)
  - LEUKOPENIA [None]
